FAERS Safety Report 7736645-0 (Version None)
Quarter: 2011Q3

REPORT INFORMATION
  Report Type: 
  Country: None (occurrence: None)
  Receive Date: 20110902
  Receipt Date: 20110822
  Transmission Date: 20111222
  Serious: Yes (Other)
  Sender: FDA-Public Use
  Company Number: 2011MA012355

PATIENT
  Sex: Male

DRUGS (4)
  1. SPIRONOLACTONE [Suspect]
     Indication: DYSPNOEA
  2. POTASSIUM CHLORIDE [Suspect]
  3. FUROSEMIDE [Suspect]
     Indication: OEDEMA
  4. ACEI (NO PREF. NAME) [Suspect]
     Indication: OEDEMA

REACTIONS (7)
  - BLOOD CREATININE INCREASED [None]
  - DYSPNOEA [None]
  - HYPOTENSION [None]
  - RENAL IMPAIRMENT [None]
  - HYPERKALAEMIA [None]
  - ASTHENIA [None]
  - BLOOD POTASSIUM INCREASED [None]
